FAERS Safety Report 5836524-X (Version None)
Quarter: 2008Q3

REPORT INFORMATION
  Report Type: 
  Country: None (occurrence: None)
  Receive Date: 20080807
  Receipt Date: 20080728
  Transmission Date: 20090109
  Serious: Yes (Other)
  Sender: FDA-Public Use
  Company Number: GB-ABBOTT-08P-167-0466131-00

PATIENT
  Age: 69 Year
  Sex: Female

DRUGS (3)
  1. ADALIMUMAB [Suspect]
     Indication: CROHN'S DISEASE
     Dosage: NOT REPORTED
     Dates: start: 20040101, end: 20060601
  2. REMICADE [Suspect]
     Indication: CROHN'S DISEASE
     Dosage: NOT REPORTED
     Dates: start: 20000101, end: 20040101
  3. METHOTREXATE [Concomitant]
     Indication: CROHN'S DISEASE
     Dosage: NOT REPORTED

REACTIONS (1)
  - NON-SMALL CELL LUNG CANCER [None]
